FAERS Safety Report 4961410-7 (Version None)
Quarter: 2006Q2

REPORT INFORMATION
  Report Type: 
  Country: None (occurrence: None)
  Receive Date: 20060403
  Receipt Date: 20050923
  Transmission Date: 20061013
  Serious: Yes (Other)
  Sender: FDA-Public Use
  Company Number: US-MERCK-0509USA03960

PATIENT
  Age: 42 Year
  Sex: Male
  Weight: 82 kg

DRUGS (3)
  1. VIOXX [Suspect]
     Indication: ARTHRALGIA
     Route: 048
     Dates: end: 20040901
  2. VIOXX [Suspect]
     Indication: OSTEOARTHRITIS
     Route: 048
     Dates: end: 20040901
  3. VICODIN [Concomitant]
     Route: 065

REACTIONS (8)
  - ARTHROPATHY [None]
  - CEREBROVASCULAR ACCIDENT [None]
  - KNEE OPERATION [None]
  - LIMB OPERATION [None]
  - POLYTRAUMATISM [None]
  - SHOULDER OPERATION [None]
  - SURGERY [None]
  - VOMITING [None]
